FAERS Safety Report 4595183-7 (Version None)
Quarter: 2005Q1

REPORT INFORMATION
  Report Type: 
  Country: None (occurrence: None)
  Receive Date: 20050223
  Receipt Date: 20050214
  Transmission Date: 20050727
  Serious: Yes (Other)
  Sender: FDA-Public Use
  Company Number: 200421141BWH

PATIENT
  Age: 73 Year
  Sex: Male

DRUGS (16)
  1. CIPRO IV [Suspect]
     Indication: OEDEMA PERIPHERAL
     Dosage: 500 MG, TOTAL DAILY, INTRAVENOUS
     Route: 042
     Dates: start: 20040916, end: 20040919
  2. CIPRO IV [Suspect]
     Indication: PERIPHERAL VASCULAR DISORDER
     Dosage: 500 MG, TOTAL DAILY, INTRAVENOUS
     Route: 042
     Dates: start: 20040916, end: 20040919
  3. CIPROFLOXACIN [Suspect]
     Indication: OEDEMA PERIPHERAL
     Dosage: 500 MG, ORAL
     Route: 048
     Dates: start: 20040919
  4. CIPROFLOXACIN [Suspect]
     Indication: PERIPHERAL VASCULAR DISORDER
     Dosage: 500 MG, ORAL
     Route: 048
     Dates: start: 20040919
  5. CLINDAMYCIN [Suspect]
     Indication: CELLULITIS
     Dosage: INTRAVENOUS
     Route: 042
  6. CLINDAMYCIN [Suspect]
     Indication: OEDEMA PERIPHERAL
     Dosage: INTRAVENOUS
     Route: 042
  7. CLINDAMYCIN (CLINDAMYCIN) [Suspect]
     Indication: CELLULITIS
     Dosage: 150 MG, TOTAL DAILY, ORAL
     Route: 048
  8. CLINDAMYCIN (CLINDAMYCIN) [Suspect]
     Indication: OEDEMA PERIPHERAL
     Dosage: 150 MG, TOTAL DAILY, ORAL
     Route: 048
  9. VITAMIN A [Concomitant]
  10. VITAMIN B COMPLEX CAP [Concomitant]
  11. VITAMIN C [Concomitant]
  12. VITAMIN D [Concomitant]
  13. VITAMIN E [Concomitant]
  14. SELENIUM TRACE METAL ADDITIVE [Concomitant]
  15. COPPER [Concomitant]
  16. CHROMIUM [Concomitant]

REACTIONS (16)
  - BLISTER [None]
  - BURNING SENSATION [None]
  - CHEST PAIN [None]
  - COUGH [None]
  - DIABETES MELLITUS INSULIN-DEPENDENT [None]
  - EAR DISCOMFORT [None]
  - HEADACHE [None]
  - HYPERTENSION [None]
  - NASOPHARYNGEAL DISORDER [None]
  - NEUROPATHY PERIPHERAL [None]
  - OEDEMA PERIPHERAL [None]
  - PNEUMONIA [None]
  - PRURITUS GENERALISED [None]
  - RASH VESICULAR [None]
  - SUNBURN [None]
  - VISUAL DISTURBANCE [None]
